FAERS Safety Report 15901405 (Version 2)
Quarter: 2019Q2

REPORT INFORMATION
  Report Type: Spontaneous
  Country: NL (occurrence: NL)
  Receive Date: 20190201
  Receipt Date: 20190520
  Transmission Date: 20190711
  Serious: Yes (Hospitalization)
  Sender: FDA-Public Use
  Company Number: NL-TEVA-2019-NL-1005450

PATIENT
  Age: 85 Year
  Sex: Male
  Weight: 70 kg

DRUGS (10)
  1. COTRIMOXAZOL TABLET, 160/800 MG (MILLIGRAM) [Suspect]
     Active Substance: SULFAMETHOXAZOLE\TRIMETHOPRIM
     Indication: URINARY TRACT INFECTION
     Dosage: 2D1? TABLET, 160/800 MG (MILLIGRAM)
     Route: 065
     Dates: start: 20181218, end: 20190101
  2. GENTAMICINE IV [Concomitant]
     Dosage: ONE-OFF 350MG (AT 70KG)
     Route: 042
     Dates: start: 20181220
  3. HALDOL 0.5MG-1MG [Concomitant]
  4. MACROGOL [Concomitant]
     Active Substance: POLYETHYLENE GLYCOLS
     Dosage: 1DD1 WITH EXTRA 1DD1 BAG IF NECESSARY
  5. PARACETAMOL [Concomitant]
     Active Substance: ACETAMINOPHEN
     Dosage: 4DD2 IF NECESSARY
  6. LORAZEPAM. [Concomitant]
     Active Substance: LORAZEPAM
     Dosage: ZN 0.5MG 2DD
  7. COLECALCIFEROL 800IE [Concomitant]
     Dosage: 1 DOSAGE FORMS DAILY;
  8. MIRTAZAPINE 30MG [Concomitant]
     Active Substance: MIRTAZAPINE
     Dosage: 1 DOSAGE FORMS DAILY;
  9. AMOXICILLINE TABLET, 750 MG (MILLIGRAM) [Suspect]
     Active Substance: AMOXICILLIN
     Indication: URINARY TRACT INFECTION
     Dosage: 3D750MG
     Route: 065
     Dates: start: 20181221, end: 20190102
  10. OMEPRAZOL [Concomitant]
     Active Substance: OMEPRAZOLE
     Dosage: 40 MILLIGRAM DAILY;

REACTIONS (2)
  - Jaundice [Recovering/Resolving]
  - Drug-induced liver injury [Recovering/Resolving]

NARRATIVE: CASE EVENT DATE: 20190102
